FAERS Safety Report 4791306-5 (Version None)
Quarter: 2005Q4

REPORT INFORMATION
  Report Type: 
  Country: None (occurrence: None)
  Receive Date: 20051007
  Receipt Date: 20050803
  Transmission Date: 20060501
  Serious: Yes (Hospitalization)
  Sender: FDA-Public Use
  Company Number: US-GLAXOSMITHKLINE-A0568939A

PATIENT
  Age: 65 Year
  Sex: Female
  Weight: 73 kg

DRUGS (7)
  1. ECOTRIN ADULT LOW STRENGTH TABLETS [Suspect]
     Indication: RETINAL ARTERY OCCLUSION
     Dosage: 81MG PER DAY
     Route: 048
     Dates: start: 20050604, end: 20050730
  2. ZONEGRAN [Concomitant]
     Indication: EPILEPSY
  3. KEPPRA [Concomitant]
     Indication: EPILEPSY
     Dosage: 750MG TWICE PER DAY
     Route: 048
  4. TOPROL-XL [Concomitant]
     Dosage: 25MG PER DAY
     Route: 048
  5. ZETIA [Concomitant]
     Indication: BLOOD CHOLESTEROL INCREASED
     Dosage: 10MG PER DAY
     Route: 048
  6. ACTONEL [Concomitant]
     Indication: OSTEOPOROSIS
     Dosage: 35MG WEEKLY
  7. VITAMINS [Concomitant]
     Indication: VITAMIN SUPPLEMENTATION

REACTIONS (18)
  - ANAEMIA [None]
  - ANGINA PECTORIS [None]
  - BLOOD IRON DECREASED [None]
  - CARDIAC STRESS TEST ABNORMAL [None]
  - DYSPNOEA EXERTIONAL [None]
  - FATIGUE [None]
  - FLUID OVERLOAD [None]
  - GASTRIC ULCER [None]
  - GASTRITIS EROSIVE [None]
  - GASTROINTESTINAL HAEMORRHAGE [None]
  - HAEMOGLOBIN DECREASED [None]
  - HEPATITIS C [None]
  - ISCHAEMIA [None]
  - MELAENA [None]
  - PARAESTHESIA [None]
  - SERUM FERRITIN DECREASED [None]
  - VASCULAR ANOMALY [None]
  - VON WILLEBRAND'S DISEASE [None]
